FAERS Safety Report 4498755-3 (Version None)
Quarter: 2004Q4

REPORT INFORMATION
  Report Type: 
  Country: None (occurrence: None)
  Receive Date: 20041108
  Receipt Date: 20041022
  Transmission Date: 20050328
  Serious: Yes (Hospitalization, Other)
  Sender: FDA-Public Use
  Company Number: DE-2004-033675

PATIENT
  Age: 25 Year
  Sex: Female

DRUGS (2)
  1. MIRENA [Suspect]
     Dosage: 20 UG/DAY, CONT. INTRA-UTERINE
     Route: 015
  2. MEAVERIN (MEPIVACAINE HYDROCHLORIDE) [Suspect]

REACTIONS (2)
  - LEUKOCYTOCLASTIC VASCULITIS [None]
  - PETECHIAE [None]
